FAERS Safety Report 15627647 (Version 2)
Quarter: 2018Q4

REPORT INFORMATION
  Report Type: Spontaneous
  Country: FR (occurrence: FR)
  Receive Date: 20181116
  Receipt Date: 20181130
  Transmission Date: 20190205
  Serious: Yes (Death, Other)
  Sender: FDA-Public Use
  Company Number: FR-GRUNENTHAL-2018-24200

PATIENT
  Sex: Female

DRUGS (1)
  1. QUTENZA [Suspect]
     Active Substance: CAPSAICIN
     Indication: NEURALGIA
     Dosage: UNK
     Route: 003
     Dates: start: 201610

REACTIONS (8)
  - Breast cancer recurrent [Fatal]
  - General physical health deterioration [Unknown]
  - Burning sensation [Unknown]
  - Pruritus [Unknown]
  - Skin reaction [Unknown]
  - Pyrexia [Unknown]
  - Rhinitis [Unknown]
  - Condition aggravated [Fatal]

NARRATIVE: CASE EVENT DATE: 2016
